FAERS Safety Report 20771271 (Version 2)
Quarter: 2022Q2

REPORT INFORMATION
  Report Type: Spontaneous
  Country: US (occurrence: US)
  Receive Date: 20220429
  Receipt Date: 20220509
  Transmission Date: 20220721
  Serious: No
  Sender: FDA-Public Use
  Company Number: US-PFIZER INC-202101091733

PATIENT
  Age: 47 Year
  Sex: Male
  Weight: 108.86 kg

DRUGS (1)
  1. LYRICA [Suspect]
     Active Substance: PREGABALIN
     Indication: Nerve injury
     Dosage: 150 MG, 1 PILL 4X/DAY

REACTIONS (2)
  - Intentional product misuse [Unknown]
  - Therapeutic product effect decreased [Unknown]
